FAERS Safety Report 8839202 (Version 1)
Quarter: 2012Q4

REPORT INFORMATION
  Report Type: 
  Country: US (occurrence: US)
  Receive Date: 20121015
  Receipt Date: 20121015
  Transmission Date: 20130627
  Serious: Yes (Other)
  Sender: FDA-Public Use
  Company Number: US-AMGEN-USASP2012064186

PATIENT
  Age: 59 Year
  Sex: Female

DRUGS (1)
  1. ENBREL [Suspect]
     Indication: RHEUMATOID ARTHRITIS
     Dosage: 25 mg, qwk
     Dates: start: 20010501, end: 20120810

REACTIONS (7)
  - Skin infection [Recovered/Resolved]
  - Cystitis [Recovered/Resolved]
  - Ear haemorrhage [Not Recovered/Not Resolved]
  - Purulent discharge [Not Recovered/Not Resolved]
  - Scab [Not Recovered/Not Resolved]
  - Anxiety [Not Recovered/Not Resolved]
  - Skin lesion [Recovered/Resolved]
